FAERS Safety Report 19951775 (Version 1)
Quarter: 2021Q4

REPORT INFORMATION
  Report Type: Spontaneous
  Country: US (occurrence: US)
  Receive Date: 20211013
  Receipt Date: 20211013
  Transmission Date: 20220304
  Serious: Yes (Other)
  Sender: FDA-Public Use
  Company Number: US-PFIZER INC-202101296979

PATIENT
  Age: 59 Year
  Sex: Female

DRUGS (6)
  1. DOXORUBICIN HYDROCHLORIDE [Suspect]
     Active Substance: DOXORUBICIN HYDROCHLORIDE
  2. VINCRISTINE SULFATE [Suspect]
     Active Substance: VINCRISTINE SULFATE
  3. CYCLOPHOSPHAMIDE [Suspect]
     Active Substance: CYCLOPHOSPHAMIDE
  4. DEXAMETHASONE [Suspect]
     Active Substance: DEXAMETHASONE
  5. BLINATUMOMAB [Suspect]
     Active Substance: BLINATUMOMAB
  6. FILGRASTIM [Suspect]
     Active Substance: FILGRASTIM

REACTIONS (2)
  - Pancytopenia [Unknown]
  - COVID-19 [Unknown]
